FAERS Safety Report 7894256-0 (Version None)
Quarter: 2011Q4

REPORT INFORMATION
  Report Type: 
  Country: None (occurrence: None)
  Receive Date: 20111104
  Receipt Date: 20111020
  Transmission Date: 20120403
  Serious: Yes (Hospitalization, Other)
  Sender: FDA-Public Use
  Company Number: DK-WATSON-2011-15919

PATIENT
  Sex: Male

DRUGS (4)
  1. MIRTAZAPINE [Suspect]
     Indication: PRODUCT USED FOR UNKNOWN INDICATION
     Dosage: 230 MG, SINGLE
     Route: 048
  2. BACLOFEN [Suspect]
     Dosage: 2500 MG, SINGLE
     Route: 065
  3. ESCITALOPRAM [Suspect]
     Indication: PRODUCT USED FOR UNKNOWN INDICATION
     Dosage: 160 MG, SINGLE
     Route: 048
  4. BACLOFEN [Suspect]
     Indication: PRODUCT USED FOR UNKNOWN INDICATION
     Dosage: 1850 MG, SINGLE
     Route: 048

REACTIONS (7)
  - OVERDOSE [None]
  - RESPIRATORY ACIDOSIS [None]
  - CONVULSION [None]
  - MUTISM [None]
  - SINUS BRADYCARDIA [None]
  - SUICIDE ATTEMPT [None]
  - COMA [None]
